FAERS Safety Report 5932236-2 (Version None)
Quarter: 2008Q4

REPORT INFORMATION
  Report Type: 
  Country: None (occurrence: None)
  Receive Date: 20081028
  Receipt Date: 20081022
  Transmission Date: 20090506
  Serious: Yes (Death, Other)
  Sender: FDA-Public Use
  Company Number: US-BRISTOL-MYERS SQUIBB COMPANY-14381453

PATIENT
  Age: 25 Year
  Sex: Male

DRUGS (4)
  1. ABILIFY [Suspect]
     Indication: ANXIETY
     Dosage: DURATION OF THERAPY: 2-3 DAYS
  2. ABILIFY [Suspect]
     Indication: FEAR
     Dosage: DURATION OF THERAPY: 2-3 DAYS
  3. QUETIAPINE FUMARATE [Concomitant]
  4. LITHIUM [Concomitant]

REACTIONS (2)
  - CONTUSION [None]
  - DEATH [None]
